FAERS Safety Report 9670688 (Version 3)
Quarter: 2013Q4

REPORT INFORMATION
  Report Type: Spontaneous
  Country: JP (occurrence: JP)
  Receive Date: 20131106
  Receipt Date: 20131217
  Transmission Date: 20140711
  Serious: Yes (Death, Hospitalization)
  Sender: FDA-Public Use
  Company Number: JP-ROCHE-1298486

PATIENT
  Age: 83 Year
  Sex: Female

DRUGS (2)
  1. XOLAIR [Suspect]
     Indication: ASTHMA
     Route: 058
     Dates: start: 20101130
  2. XOLAIR [Suspect]
     Route: 058
     Dates: start: 20131003

REACTIONS (1)
  - Pneumonia [Fatal]
